FAERS Safety Report 11838937 (Version 1)
Quarter: 2015Q4

REPORT INFORMATION
  Report Type: Spontaneous
  Country: US (occurrence: US)
  Receive Date: 20151216
  Receipt Date: 20151216
  Transmission Date: 20160305
  Serious: Yes (Hospitalization)
  Sender: FDA-Public Use
  Company Number: US-ROCHE-1600810

PATIENT
  Sex: Female
  Weight: 95.34 kg

DRUGS (1)
  1. ESBRIET [Suspect]
     Active Substance: PIRFENIDONE
     Indication: IDIOPATHIC PULMONARY FIBROSIS
     Dosage: DOSE STRENGTH 267 MG CAPSULES?3 CAPSULES 3 TIMES A DAY
     Route: 048
     Dates: start: 20150320

REACTIONS (4)
  - Upper limb fracture [Unknown]
  - Fall [Unknown]
  - Foot fracture [Unknown]
  - Sinusitis [Unknown]
